FAERS Safety Report 9169712 (Version 2)
Quarter: 2013Q2

REPORT INFORMATION
  Report Type: Spontaneous
  Country: DE (occurrence: DE)
  Receive Date: 20130318
  Receipt Date: 20130522
  Transmission Date: 20140414
  Serious: Yes (Disabling)
  Sender: FDA-Public Use
  Company Number: GXKR2013DE001143

PATIENT
  Age: 13 Year
  Sex: Male
  Weight: 55 kg

DRUGS (2)
  1. AMOXIHEXAL [Suspect]
     Indication: ACUTE TONSILLITIS
     Dosage: UNK
     Route: 048
     Dates: start: 20130401, end: 20130402
  2. IBUPROFEN [Concomitant]
     Route: 065

REACTIONS (3)
  - Musculoskeletal discomfort [Recovering/Resolving]
  - Walking disability [Recovering/Resolving]
  - Muscle spasms [Recovering/Resolving]
